FAERS Safety Report 10642388 (Version 1)
Quarter: 2014Q4

REPORT INFORMATION
  Report Type: Spontaneous
  Country: US (occurrence: None)
  Receive Date: 20141208
  Receipt Date: 20141208
  Transmission Date: 20150529
  Serious: Yes (Life-Threatening)
  Sender: FDA-Public Use
  Company Number: None

PATIENT
  Age: 28 Year
  Sex: Female
  Weight: 85.28 kg

DRUGS (1)
  1. RIFAPENTINE [Suspect]
     Active Substance: RIFAPENTINE
     Indication: LATENT TUBERCULOSIS
     Route: 048
     Dates: start: 20140926, end: 20141003

REACTIONS (10)
  - Chest pain [None]
  - Dyspnoea [None]
  - Chills [None]
  - Vision blurred [None]
  - Asthenia [None]
  - Pyrexia [None]
  - Pain [None]
  - Hypertension [None]
  - Nausea [None]
  - Confusional state [None]

NARRATIVE: CASE EVENT DATE: 20141004
